FAERS Safety Report 8432083-6 (Version None)
Quarter: 2012Q2

REPORT INFORMATION
  Report Type: 
  Country: None (occurrence: None)
  Receive Date: 20120613
  Receipt Date: 20120605
  Transmission Date: 20120825
  Serious: Yes (Hospitalization, Other)
  Sender: FDA-Public Use
  Company Number: US-CELGENEUS-163-21880-12050969

PATIENT
  Sex: Female

DRUGS (8)
  1. DEXAMETHASONE [Concomitant]
     Dosage: 5 TABLET
     Route: 048
  2. OXYGEN [Concomitant]
     Dosage: 2 LITERS
     Route: 045
  3. CALCIUM CARBONATE [Concomitant]
     Dosage: 1 TABLET
     Route: 048
  4. AGGRENOX [Concomitant]
     Dosage: 25-200MG
     Route: 048
  5. MULTI-VITAMINS [Concomitant]
     Dosage: 1 TABLET
     Route: 048
  6. REVLIMID [Suspect]
     Indication: MULTIPLE MYELOMA
     Dosage: 25 MILLIGRAM
     Route: 048
     Dates: start: 20101013
  7. DARBEPOETIN ALFA-ALBUMIN [Concomitant]
     Dosage: 300 MICROGRAM
     Route: 065
  8. ADVAIR HFA [Concomitant]
     Dosage: 1 PUFF
     Route: 055

REACTIONS (1)
  - CONVULSION [None]
